FAERS Safety Report 6862094-3 (Version None)
Quarter: 2010Q3

REPORT INFORMATION
  Report Type: 
  Country: None (occurrence: None)
  Receive Date: 20100721
  Receipt Date: 20100708
  Transmission Date: 20110219
  Serious: Yes (Hospitalization, Other)
  Sender: FDA-Public Use
  Company Number: DE-ELI_LILLY_AND_COMPANY-DE201006002685

PATIENT
  Age: 3 Day
  Weight: 2.98 kg

DRUGS (5)
  1. CYMBALTA [Suspect]
     Dosage: 60 MG, UNKNOWN
     Route: 064
     Dates: start: 20091006, end: 20091001
  2. CYMBALTA [Suspect]
     Dates: start: 20100301
  3. FEMIBION [Concomitant]
     Dates: start: 20091001
  4. BERLINSULIN H NORMAL [Concomitant]
     Dates: start: 20100301
  5. BERLINSULIN H BASAL [Concomitant]
     Dates: start: 20100301

REACTIONS (4)
  - DRUG EXPOSURE DURING PREGNANCY [None]
  - LEUKOPENIA [None]
  - NEONATAL INFECTION [None]
  - RESPIRATORY DISTRESS [None]
